FAERS Safety Report 12557548 (Version 1)
Quarter: 2016Q3

REPORT INFORMATION
  Report Type: Spontaneous
  Country: BR (occurrence: BR)
  Receive Date: 20160714
  Receipt Date: 20160714
  Transmission Date: 20161109
  Serious: Yes (Other)
  Sender: FDA-Public Use
  Company Number: BR-ALEXION-A201605141

PATIENT
  Sex: Female
  Weight: 60 kg

DRUGS (2)
  1. SOLIRIS [Suspect]
     Active Substance: ECULIZUMAB
     Indication: HAEMOLYTIC URAEMIC SYNDROME
     Dosage: UNK
     Route: 042
     Dates: start: 20150920
  2. PEN-VE-ORAL [Suspect]
     Active Substance: PENICILLIN V POTASSIUM
     Indication: ANTIBIOTIC PROPHYLAXIS
     Dosage: 500000 IU, Q12H
     Route: 048
     Dates: start: 201602

REACTIONS (1)
  - Ocular hypertension [Not Recovered/Not Resolved]
